FAERS Safety Report 13426017 (Version 3)
Quarter: 2017Q2

REPORT INFORMATION
  Report Type: Spontaneous
  Country: US (occurrence: US)
  Receive Date: 20170411
  Receipt Date: 20170510
  Transmission Date: 20170830
  Serious: Yes (Other)
  Sender: FDA-Public Use
  Company Number: PHEH2017US010432

PATIENT
  Sex: Female

DRUGS (1)
  1. AFINITOR [Suspect]
     Active Substance: EVEROLIMUS
     Indication: BREAST CANCER
     Dosage: 10 MG, QD
     Route: 048
     Dates: start: 20170120

REACTIONS (4)
  - Malignant neoplasm progression [Unknown]
  - Lower respiratory tract infection [Not Recovered/Not Resolved]
  - Breast cancer [Unknown]
  - Urinary tract infection [Not Recovered/Not Resolved]
